FAERS Safety Report 17111731 (Version 1)
Quarter: 2019Q4

REPORT INFORMATION
  Report Type: Spontaneous
  Country: JP (occurrence: JP)
  Receive Date: 20191204
  Receipt Date: 20191204
  Transmission Date: 20200122
  Serious: Yes (Death, Other)
  Sender: FDA-Public Use
  Company Number: JP-ACTELION-A-CH2019-198729

PATIENT
  Age: 14 Year
  Sex: Female

DRUGS (2)
  1. REVATIO [Concomitant]
     Active Substance: SILDENAFIL CITRATE
     Route: 051
  2. EPOPROSTENOL SODIUM. [Suspect]
     Active Substance: EPOPROSTENOL SODIUM
     Indication: PULMONARY EMBOLISM
     Route: 042

REACTIONS (8)
  - Subarachnoid haemorrhage [Unknown]
  - Pulmonary hypertension [Unknown]
  - Cardiac arrest [Fatal]
  - Lung assist device therapy [Unknown]
  - Cerebral ischaemia [Unknown]
  - Sternotomy [Unknown]
  - Cardiac operation [Unknown]
  - Pulmonary embolism [Unknown]
